FAERS Safety Report 14479734 (Version 2)
Quarter: 2018Q1

REPORT INFORMATION
  Report Type: Spontaneous
  Country: NO (occurrence: NO)
  Receive Date: 20180202
  Receipt Date: 20180209
  Transmission Date: 20180509
  Serious: Yes (Other)
  Sender: FDA-Public Use
  Company Number: NO-BAYER-2018-016363

PATIENT
  Sex: Male
  Weight: 10 kg

DRUGS (3)
  1. KOVALTRY [Suspect]
     Active Substance: ANTIHEMOPHILIC FACTOR, HUMAN RECOMBINANT
     Indication: HAEMOPHILIA
     Dosage: 250 IU, PRN, 2 EXPOSURE DAYS PRIOR TO INHIBITOR DETECTION
     Route: 042
     Dates: start: 20180109, end: 20180109
  2. KOVALTRY [Suspect]
     Active Substance: ANTIHEMOPHILIC FACTOR, HUMAN RECOMBINANT
     Indication: MUSCLE HAEMORRHAGE
  3. KOVALTRY [Suspect]
     Active Substance: ANTIHEMOPHILIC FACTOR, HUMAN RECOMBINANT
     Indication: HAEMARTHROSIS
     Dosage: 250 IU, PRN, 2 EXPOSURE DAYS PRIOR TO INHIBITOR DETECTION
     Route: 042
     Dates: start: 20171114, end: 20171114

REACTIONS (1)
  - Anti factor VIII antibody positive [Unknown]

NARRATIVE: CASE EVENT DATE: 20180124
